FAERS Safety Report 12845138 (Version 2)
Quarter: 2016Q4

REPORT INFORMATION
  Report Type: Report from Study
  Country: US (occurrence: US)
  Receive Date: 20161013
  Receipt Date: 20161103
  Transmission Date: 20170207
  Serious: Yes (Other)
  Sender: FDA-Public Use
  Company Number: PHEH2016US026132

PATIENT
  Sex: Male
  Weight: 79.3 kg

DRUGS (1)
  1. GILENYA [Suspect]
     Active Substance: FINGOLIMOD HYDROCHLORIDE
     Indication: MULTIPLE SCLEROSIS
     Dosage: 0.5 MG, QD
     Route: 048

REACTIONS (5)
  - Limb crushing injury [Unknown]
  - Joint injury [Unknown]
  - Malaise [Unknown]
  - Localised infection [Recovered/Resolved]
  - Peripheral swelling [Recovered/Resolved]
